FAERS Safety Report 17166266 (Version 2)
Quarter: 2020Q1

REPORT INFORMATION
  Report Type: Report from Study
  Country: FR (occurrence: FR)
  Receive Date: 20191217
  Receipt Date: 20200128
  Transmission Date: 20200409
  Serious: Yes (Congenital Anomaly, Other)
  Sender: FDA-Public Use
  Company Number: FR-MYLANLABS-2019M1123302

PATIENT
  Sex: Male
  Weight: .55 kg

DRUGS (3)
  1. RITONAVIR. [Suspect]
     Active Substance: RITONAVIR
     Indication: HIV INFECTION
     Dosage: UNK UNK,UNK
     Route: 064
     Dates: start: 20121019, end: 20130402
  2. EMTRICITABINE/TENOFOVIR DISOPROXIL FUMARATE [Suspect]
     Active Substance: EMTRICITABINE\TENOFOVIR DISOPROXIL FUMARATE
     Indication: HIV INFECTION
     Dosage: UNK UNK,UNK
     Route: 064
     Dates: start: 20121019, end: 20130402
  3. ATAZANAVIR SULFATE. [Suspect]
     Active Substance: ATAZANAVIR SULFATE
     Indication: HIV INFECTION
     Dosage: UNK UNK,UNK
     Route: 064
     Dates: start: 20121019, end: 20130402

REACTIONS (3)
  - Single umbilical artery [Unknown]
  - Foetal exposure during pregnancy [Recovered/Resolved]
  - Heterotaxia [Unknown]
